FAERS Safety Report 17105808 (Version 1)
Quarter: 2019Q4

REPORT INFORMATION
  Report Type: Spontaneous
  Country: US (occurrence: US)
  Receive Date: 20191203
  Receipt Date: 20191203
  Transmission Date: 20200122
  Serious: Yes (Other)
  Sender: FDA-Public Use
  Company Number: US-GLAXOSMITHKLINE-US2019215616

PATIENT
  Age: 55 Year
  Sex: Female

DRUGS (1)
  1. NUCALA [Suspect]
     Active Substance: MEPOLIZUMAB
     Indication: ASTHMA
     Dosage: UNK
     Route: 065
     Dates: start: 20191024

REACTIONS (3)
  - Brain natriuretic peptide increased [Not Recovered/Not Resolved]
  - Cardiac failure congestive [Unknown]
  - Weight increased [Unknown]

NARRATIVE: CASE EVENT DATE: 20191026
